FAERS Safety Report 19058260 (Version 1)
Quarter: 2021Q1

REPORT INFORMATION
  Report Type: Spontaneous
  Country: US (occurrence: US)
  Receive Date: 20210325
  Receipt Date: 20210325
  Transmission Date: 20210420
  Serious: No
  Sender: FDA-Public Use
  Company Number: NVSC2021US062932

PATIENT
  Sex: Female

DRUGS (2)
  1. AZOPT [Suspect]
     Active Substance: BRINZOLAMIDE
     Dosage: UNK
     Route: 065
  2. AZOPT [Suspect]
     Active Substance: BRINZOLAMIDE
     Indication: PRODUCT USED FOR UNKNOWN INDICATION
     Dosage: 1 DRP, TID
     Route: 065

REACTIONS (6)
  - Eye infection [Unknown]
  - Eye infection [Recovered/Resolved]
  - Ocular hyperaemia [Unknown]
  - Ocular discomfort [Unknown]
  - Product contamination physical [Unknown]
  - Foreign body sensation in eyes [Unknown]
